FAERS Safety Report 19010326 (Version 1)
Quarter: 2021Q1

REPORT INFORMATION
  Report Type: Spontaneous
  Country: US (occurrence: US)
  Receive Date: 20210315
  Receipt Date: 20210315
  Transmission Date: 20210420
  Serious: Yes (Other)
  Sender: FDA-Public Use
  Company Number: None

PATIENT
  Age: 62 Year
  Sex: Female
  Weight: 65.77 kg

DRUGS (3)
  1. DESVENLAFAXINE SUCCINATE ER 100MG [Suspect]
     Active Substance: DESVENLAFAXINE SUCCINATE
     Indication: MAJOR DEPRESSION
     Route: 048
  2. DESVENLATAXINE SUCCINATE ER 100MG [Suspect]
     Active Substance: DESVENLAFAXINE SUCCINATE
     Indication: GENERALISED ANXIETY DISORDER
  3. DESVENLATAXINE SUCCINATE ER 100MG [Suspect]
     Active Substance: DESVENLAFAXINE SUCCINATE
     Indication: STRESS

REACTIONS (7)
  - Product substitution issue [None]
  - Depression [None]
  - Mental impairment [None]
  - Blood pressure increased [None]
  - Anxiety [None]
  - Anger [None]
  - Heart rate increased [None]

NARRATIVE: CASE EVENT DATE: 20180110
